FAERS Safety Report 7888205-9 (Version None)
Quarter: 2011Q4

REPORT INFORMATION
  Report Type: 
  Country: None (occurrence: None)
  Receive Date: 20111103
  Receipt Date: 20111026
  Transmission Date: 20120403
  Serious: Yes (Other)
  Sender: FDA-Public Use
  Company Number: US-BAYER-2011-105118

PATIENT
  Sex: Female

DRUGS (3)
  1. FLECTOR [Concomitant]
  2. ASPIRIN [Suspect]
  3. PLAVIX [Interacting]

REACTIONS (1)
  - HAEMORRHAGE [None]
